FAERS Safety Report 17718019 (Version 3)
Quarter: 2022Q3

REPORT INFORMATION
  Report Type: Report from Study
  Country: GB (occurrence: GB)
  Receive Date: 20200428
  Receipt Date: 20220831
  Transmission Date: 20221026
  Serious: Yes (Hospitalization)
  Sender: FDA-Public Use
  Company Number: GB-OTSUKA-2018_023534

PATIENT
  Age: 58 Year
  Sex: Female
  Weight: 79.8 kg

DRUGS (18)
  1. TOLVAPTAN [Suspect]
     Active Substance: TOLVAPTAN
     Indication: Congenital cystic kidney disease
     Dosage: 60 MG, QD (IN MORNING)
     Route: 048
     Dates: start: 20180327
  2. TOLVAPTAN [Suspect]
     Active Substance: TOLVAPTAN
     Dosage: 30 MG, QD (IN EVENING)
     Route: 048
     Dates: start: 20180327
  3. TOLVAPTAN [Suspect]
     Active Substance: TOLVAPTAN
     Dosage: UNK, QD (IN MORNING)
     Route: 048
     Dates: start: 20180112
  4. TOLVAPTAN [Suspect]
     Active Substance: TOLVAPTAN
     Dosage: UNK, QD (IN EVENING)
     Route: 048
     Dates: start: 20180112
  5. TOLVAPTAN [Suspect]
     Active Substance: TOLVAPTAN
     Dosage: 45 MG, QD (IN MORNING)
     Route: 048
     Dates: start: 20170728
  6. TOLVAPTAN [Suspect]
     Active Substance: TOLVAPTAN
     Dosage: 15 MG, QD (IN EVENING)
     Route: 048
     Dates: start: 20170728
  7. BISOPROLOL [Concomitant]
     Active Substance: BISOPROLOL
     Indication: Essential hypertension
     Dosage: 1.5 MG, QD
     Route: 048
     Dates: start: 20170310, end: 20171112
  8. BISOPROLOL [Concomitant]
     Active Substance: BISOPROLOL
     Dosage: 2.5 MG, QD
     Route: 048
     Dates: start: 20171112
  9. RAMIPRIL [Concomitant]
     Active Substance: RAMIPRIL
     Indication: Secondary hypertension
     Dosage: 5 MG, QD
     Route: 048
     Dates: start: 20110401, end: 20180112
  10. RAMIPRIL [Concomitant]
     Active Substance: RAMIPRIL
     Dosage: 10 MG, QD
     Route: 048
     Dates: start: 20180112
  11. PREGABALIN [Concomitant]
     Active Substance: PREGABALIN
     Indication: Complex regional pain syndrome
     Dosage: 150 MG, QD
     Route: 048
     Dates: start: 20160912, end: 20171112
  12. PREGABALIN [Concomitant]
     Active Substance: PREGABALIN
     Dosage: 300 MG, QD
     Route: 048
     Dates: start: 20160912
  13. PREGABALIN [Concomitant]
     Active Substance: PREGABALIN
     Dosage: 300 MG, ONCE
     Route: 048
     Dates: start: 20171112
  14. SERTRALINE [Concomitant]
     Active Substance: SERTRALINE HYDROCHLORIDE
     Indication: Depression
     Dosage: 1 DF, QD
     Route: 048
     Dates: start: 20160307
  15. ACETAMINOPHEN [Concomitant]
     Active Substance: ACETAMINOPHEN
     Indication: Complex regional pain syndrome
     Dosage: 500 MG, EVERY 6 HOURS,UP TO FOUR TIMES A DAY
     Route: 048
     Dates: start: 20160310
  16. SODIUM BICARBONATE [Concomitant]
     Active Substance: SODIUM BICARBONATE
     Indication: Blood potassium abnormal
     Dosage: 500 MG, QD
     Route: 048
     Dates: start: 2018
  17. LANSOPRAZOLE [Concomitant]
     Active Substance: LANSOPRAZOLE
     Indication: Gastrooesophageal reflux disease
     Dosage: 30 MG, QD
     Route: 048
     Dates: start: 2018
  18. ASPIRIN [Concomitant]
     Active Substance: ASPIRIN
     Indication: Anticoagulant therapy
     Dosage: 75 MG, QW
     Route: 048
     Dates: start: 2018

REACTIONS (1)
  - Liver transplant [Recovered/Resolved]

NARRATIVE: CASE EVENT DATE: 20180501
